FAERS Safety Report 9787311 (Version 1)
Quarter: 2013Q4

REPORT INFORMATION
  Report Type: Spontaneous
  Country: US (occurrence: US)
  Receive Date: 20131230
  Receipt Date: 20131230
  Transmission Date: 20140711
  Serious: No
  Sender: FDA-Public Use
  Company Number: US-009507513-1312USA005432

PATIENT
  Age: 31 Year
  Sex: Female
  Weight: 88.44 kg

DRUGS (1)
  1. NUVARING [Suspect]
     Indication: CONTRACEPTION
     Dosage: WAS PLANNING TO USE 3 WEEKS IN 1 WEEKS OUT
     Route: 067
     Dates: start: 20131128, end: 2013

REACTIONS (2)
  - Menstrual disorder [Unknown]
  - Device expulsion [Unknown]
